FAERS Safety Report 21150314 (Version 1)
Quarter: 2022Q3

REPORT INFORMATION
  Report Type: Spontaneous
  Country: US (occurrence: US)
  Receive Date: 20220729
  Receipt Date: 20220729
  Transmission Date: 20221026
  Serious: No
  Sender: FDA-Public Use
  Company Number: US-NOVOPROD-908172

PATIENT
  Age: 67 Year
  Sex: Female

DRUGS (2)
  1. OZEMPIC [Suspect]
     Active Substance: SEMAGLUTIDE
     Indication: Type 2 diabetes mellitus
     Dosage: 0.25 MG
     Route: 065
     Dates: start: 20220116, end: 20220127
  2. NOVOLIN 70/30 [Concomitant]
     Active Substance: INSULIN HUMAN
     Indication: Type 2 diabetes mellitus
     Dates: start: 20150409

REACTIONS (9)
  - Asthenia [Unknown]
  - Insomnia [Unknown]
  - Nervousness [Unknown]
  - Headache [Unknown]
  - Hyperhidrosis [Unknown]
  - Back pain [Unknown]
  - Vomiting [Recovered/Resolved]
  - Nausea [Unknown]
  - Blood glucose decreased [Unknown]

NARRATIVE: CASE EVENT DATE: 20220116
